FAERS Safety Report 21129950 (Version 3)
Quarter: 2022Q3

REPORT INFORMATION
  Report Type: Spontaneous
  Country: US (occurrence: US)
  Receive Date: 20220726
  Receipt Date: 20220830
  Transmission Date: 20221027
  Serious: No
  Sender: FDA-Public Use
  Company Number: US-AMGEN-USASP2022126689

PATIENT
  Sex: Female

DRUGS (7)
  1. OTEZLA [Suspect]
     Active Substance: APREMILAST
     Indication: Psoriasis
     Dosage: 30 MILLIGRAM, BID
     Route: 048
     Dates: start: 20211229
  2. ATORVASTATIN [Concomitant]
     Active Substance: ATORVASTATIN
     Dosage: 10 MILLIGRAM
  3. LEVOTHYROXINE [Concomitant]
     Active Substance: LEVOTHYROXINE
     Dosage: 50 MICROGRAM
  4. NOVOLOG [Concomitant]
     Active Substance: INSULIN ASPART
  5. OZEMPIC [Concomitant]
     Active Substance: SEMAGLUTIDE
     Dosage: 2/1.5 ML
  6. PROLENSA [Concomitant]
     Active Substance: BROMFENAC SODIUM
     Dosage: 0.07 PERCENT
  7. TRESIBA [Concomitant]
     Active Substance: INSULIN DEGLUDEC
     Dosage: 200 UNIT

REACTIONS (2)
  - Illness [Not Recovered/Not Resolved]
  - Psoriasis [Not Recovered/Not Resolved]
